FAERS Safety Report 5793350-8 (Version None)
Quarter: 2008Q2

REPORT INFORMATION
  Report Type: 
  Country: None (occurrence: None)
  Receive Date: 20080627
  Receipt Date: 20080626
  Transmission Date: 20081010
  Serious: Yes (Hospitalization)
  Sender: FDA-Public Use
  Company Number: B0518255A

PATIENT
  Age: 41 Year
  Sex: Male

DRUGS (4)
  1. EPZICOM [Suspect]
     Indication: ACQUIRED IMMUNODEFICIENCY SYNDROME
     Dosage: 1TAB PER DAY
     Route: 048
     Dates: start: 20051219
  2. KALETRA [Suspect]
     Indication: ACQUIRED IMMUNODEFICIENCY SYNDROME
     Route: 048
     Dates: start: 20030203, end: 20050811
  3. KALETRA [Suspect]
     Route: 048
     Dates: start: 20050902, end: 20061119
  4. KALETRA [Suspect]
     Route: 048
     Dates: start: 20061120

REACTIONS (5)
  - ERYTHEMA NODOSUM [None]
  - HEADACHE [None]
  - MALAISE [None]
  - PAIN IN EXTREMITY [None]
  - RASH [None]
